FAERS Safety Report 20961538 (Version 1)
Quarter: 2022Q2

REPORT INFORMATION
  Report Type: Spontaneous
  Country: FR (occurrence: FR)
  Receive Date: 20220615
  Receipt Date: 20220615
  Transmission Date: 20220721
  Serious: Yes (Hospitalization)
  Sender: FDA-Public Use
  Company Number: FR-AFSSAPS-MP20221965

PATIENT
  Age: 91 Year
  Sex: Female
  Weight: 57 kg

DRUGS (1)
  1. SERTRALINE [Suspect]
     Active Substance: SERTRALINE HYDROCHLORIDE
     Indication: Depression
     Dosage: 100 MILLIGRAM, DAILY
     Route: 048
     Dates: start: 202204, end: 202205

REACTIONS (1)
  - Asthma [Recovering/Resolving]

NARRATIVE: CASE EVENT DATE: 20220401
